FAERS Safety Report 15618907 (Version 4)
Quarter: 2018Q4

REPORT INFORMATION
  Report Type: Report from Study
  Country: US (occurrence: US)
  Receive Date: 20181114
  Receipt Date: 20181116
  Transmission Date: 20190205
  Serious: Yes (Other)
  Sender: FDA-Public Use
  Company Number: US-GILEAD-2018-0374012

PATIENT
  Age: 65 Year
  Sex: Male

DRUGS (3)
  1. ATORVASTATIN [Concomitant]
     Active Substance: ATORVASTATIN
  2. LOSARTAN. [Concomitant]
     Active Substance: LOSARTAN
  3. RANOLAZINE. [Suspect]
     Active Substance: RANOLAZINE
     Indication: ANGINA PECTORIS
     Dosage: 500 MG, BID
     Route: 048
     Dates: start: 2016, end: 20181109

REACTIONS (7)
  - Fatigue [Not Recovered/Not Resolved]
  - Arterial occlusive disease [Unknown]
  - Dizziness [Unknown]
  - Product use issue [Not Recovered/Not Resolved]
  - Stent placement [Unknown]
  - Device occlusion [Unknown]
  - Hypotension [Unknown]

NARRATIVE: CASE EVENT DATE: 2018
